FAERS Safety Report 17283363 (Version 1)
Quarter: 2020Q1

REPORT INFORMATION
  Report Type: Spontaneous
  Country: CZ (occurrence: CZ)
  Receive Date: 20200117
  Receipt Date: 20200117
  Transmission Date: 20200409
  Serious: Yes (Other)
  Sender: FDA-Public Use
  Company Number: CZ-ASTRAZENECA-2020SE03946

PATIENT
  Age: 73 Year
  Sex: Female

DRUGS (8)
  1. PURINOL [ALLOPURINOL] [Concomitant]
     Active Substance: ALLOPURINOL
  2. INDAP [Concomitant]
  3. CANOCORD [Concomitant]
  4. BETALOC [Concomitant]
     Active Substance: METOPROLOL TARTRATE
  5. ANOPYRIN [Concomitant]
     Active Substance: ASPIRIN
     Dosage: \
  6. STADAMET [Concomitant]
     Active Substance: METFORMIN HYDROCHLORIDE
  7. ROSUCARD [Suspect]
     Active Substance: ROSUVASTATIN CALCIUM
     Route: 048
     Dates: start: 20191201, end: 20191227
  8. COLCHICUM [Concomitant]
     Active Substance: COLCHICINE

REACTIONS (4)
  - Abdominal distension [Not Recovered/Not Resolved]
  - Dyspnoea [Not Recovered/Not Resolved]
  - Gastrointestinal disorder [Not Recovered/Not Resolved]
  - Eyelid oedema [Not Recovered/Not Resolved]

NARRATIVE: CASE EVENT DATE: 20191201
